FAERS Safety Report 16902288 (Version 4)
Quarter: 2019Q4

REPORT INFORMATION
  Report Type: Spontaneous
  Country: US (occurrence: US)
  Receive Date: 20191010
  Receipt Date: 20191107
  Transmission Date: 20200122
  Serious: Yes (Hospitalization, Other)
  Sender: FDA-Public Use
  Company Number: US-UNITED THERAPEUTICS-UNT-2019-016064

PATIENT
  Age: 54 Year
  Sex: Male
  Weight: 91.16 kg

DRUGS (5)
  1. TRACLEER [Concomitant]
     Active Substance: BOSENTAN
     Indication: PRODUCT USED FOR UNKNOWN INDICATION
     Dosage: UNK
     Route: 065
  2. REMODULIN [Suspect]
     Active Substance: TREPROSTINIL
     Indication: PULMONARY ARTERIAL HYPERTENSION
     Dosage: 0.086 ?G/KG, CONTINUING
     Route: 041
     Dates: start: 20190416
  3. REMODULIN [Suspect]
     Active Substance: TREPROSTINIL
     Dosage: 0.094 ?G/KG, CONTINUING
     Route: 041
  4. REVATIO [Concomitant]
     Active Substance: SILDENAFIL CITRATE
     Indication: PRODUCT USED FOR UNKNOWN INDICATION
     Dosage: UNK
     Route: 065
  5. REMODULIN [Suspect]
     Active Substance: TREPROSTINIL
     Indication: PULMONARY ARTERIAL HYPERTENSION
     Dosage: 0.064 ?G/KG, CONTINUING
     Route: 041
     Dates: start: 20190416

REACTIONS (5)
  - Chronic kidney disease [Not Recovered/Not Resolved]
  - Right ventricular failure [Recovering/Resolving]
  - Fluid overload [Recovering/Resolving]
  - Pulmonary arterial hypertension [Not Recovered/Not Resolved]
  - Oedema [Recovering/Resolving]

NARRATIVE: CASE EVENT DATE: 2019
